FAERS Safety Report 8181466-0 (Version None)
Quarter: 2012Q1

REPORT INFORMATION
  Report Type: 
  Country: None (occurrence: None)
  Receive Date: 20120302
  Receipt Date: 20120229
  Transmission Date: 20120608
  Serious: Yes (Other)
  Sender: FDA-Public Use
  Company Number: US-PFIZER INC-2012032814

PATIENT
  Sex: Female

DRUGS (3)
  1. METFORMIN HCL [Suspect]
     Dosage: UNK
     Route: 048
  2. LYRICA [Suspect]
     Dosage: UNK
  3. INSULIN [Suspect]
     Dosage: UNK

REACTIONS (4)
  - DIABETIC NEUROPATHY [None]
  - DIABETES MELLITUS [None]
  - FIBROMYALGIA [None]
  - CYSTITIS [None]
